FAERS Safety Report 4492874-3 (Version None)
Quarter: 2004Q4

REPORT INFORMATION
  Report Type: 
  Country: None (occurrence: None)
  Receive Date: 20041029
  Receipt Date: 20041019
  Transmission Date: 20050328
  Serious: Yes (Hospitalization)
  Sender: FDA-Public Use
  Company Number: 2004226706JP

PATIENT
  Age: 72 Year
  Sex: Male
  Weight: 70 kg

DRUGS (14)
  1. CABERGOLINE [Suspect]
     Indication: PARKINSON'S DISEASE
     Dosage: 1 MG, BID, ORAL
     Route: 048
     Dates: start: 20020101, end: 20040623
  2. NEODOPASOL (BENSERAZIDE HYDROCHLORIDE) [Suspect]
     Indication: PARKINSON'S DISEASE
     Dosage: BID, ORAL; 2 TABLETS/DAY
     Route: 048
     Dates: start: 20020101, end: 20040130
  3. NEODOPASOL (BENSERAZIDE HYDROCHLORIDE) [Suspect]
     Indication: PARKINSON'S DISEASE
     Dosage: BID, ORAL; 2 TABLETS/DAY
     Route: 048
     Dates: start: 20040201, end: 20040620
  4. SELEGILINE (SELEGILINE) TABLET [Suspect]
     Indication: PARKINSON'S DISEASE
     Dosage: 2.5 MG, BID, ORAL; 10 MG/DAY,
     Route: 048
     Dates: start: 20020101, end: 20040120
  5. SELEGILINE (SELEGILINE) TABLET [Suspect]
     Indication: PARKINSON'S DISEASE
     Dosage: 2.5 MG, BID, ORAL; 10 MG/DAY,
     Route: 048
     Dates: start: 20040121, end: 20040123
  6. OPALMON (LIMAPROST) [Concomitant]
  7. CABAGIN-U TAB (VITAMIN U) [Concomitant]
  8. MAGNESIUM OXIDE [Concomitant]
  9. MENESIT [Concomitant]
  10. SYMMETREL [Concomitant]
  11. HARNAL (TAMSULOSIN HYDOCHLORIDE) [Concomitant]
  12. DOPS (DROXIDOPA) [Concomitant]
  13. MADOPAR (BENSERAZIDE HYDROCHLORIDE) [Concomitant]
  14. AZEPTIN (AZELASTINE) [Concomitant]

REACTIONS (3)
  - DIFFICULTY IN WALKING [None]
  - MYOCLONUS [None]
  - NEUROTRANSMITTER LEVEL ALTERED [None]
